FAERS Safety Report 12721007 (Version 1)
Quarter: 2016Q3

REPORT INFORMATION
  Report Type: Other
  Country: US (occurrence: US)
  Receive Date: 20160907
  Receipt Date: 20160907
  Transmission Date: 20161109
  Serious: No
  Sender: FDA-Public Use
  Company Number: US-COL_21370_2015

PATIENT
  Age: 87 Year
  Sex: Male

DRUGS (1)
  1. COLGATE TOTAL CLEAN MINT [Suspect]
     Active Substance: SODIUM FLUORIDE\TRICLOSAN
     Indication: PRODUCT USED FOR UNKNOWN INDICATION
     Dosage: COVERED ABOUT A QUARTER OF AN INCH OF HIS TOOTHBRUSH/ONCE/
     Route: 048
     Dates: start: 20151117, end: 20151117

REACTIONS (4)
  - Oral discomfort [Recovering/Resolving]
  - Unevaluable event [Recovering/Resolving]
  - Productive cough [Recovering/Resolving]
  - Mouth swelling [Recovering/Resolving]

NARRATIVE: CASE EVENT DATE: 20151117
